FAERS Safety Report 5010643-2 (Version None)
Quarter: 2006Q2

REPORT INFORMATION
  Report Type: 
  Country: None (occurrence: None)
  Receive Date: 20060525
  Receipt Date: 20060518
  Transmission Date: 20061013
  Serious: Yes (Death, Other)
  Sender: FDA-Public Use
  Company Number: FR-BRISTOL-MYERS SQUIBB COMPANY-13385083

PATIENT
  Age: 77 Year
  Sex: Female

DRUGS (9)
  1. GLUCOPHAGE [Suspect]
     Indication: DIABETES MELLITUS
     Route: 048
     Dates: start: 20060406, end: 20060416
  2. ACTRAPID [Concomitant]
  3. ISOPTIN [Concomitant]
  4. LEVOTHYROX [Concomitant]
     Route: 048
  5. LASILIX [Concomitant]
     Route: 048
  6. MINISINTROM [Concomitant]
     Route: 048
  7. FORLAX [Concomitant]
  8. DEBRIDAT [Concomitant]
  9. DEROXAT [Concomitant]

REACTIONS (3)
  - LACTIC ACIDOSIS [None]
  - RENAL FAILURE ACUTE [None]
  - SHOCK [None]
